FAERS Safety Report 15297144 (Version 1)
Quarter: 2018Q3

REPORT INFORMATION
  Report Type: Spontaneous
  Country: GB (occurrence: GB)
  Receive Date: 20180820
  Receipt Date: 20180820
  Transmission Date: 20181010
  Serious: Yes (Other)
  Sender: FDA-Public Use
  Company Number: GB-SA-2018SA217011

PATIENT
  Age: 32 Year
  Sex: Male

DRUGS (1)
  1. ALEMTUZUMAB [Suspect]
     Active Substance: ALEMTUZUMAB
     Dosage: 12 MG UNK
     Route: 041
     Dates: start: 20160411, end: 20170412

REACTIONS (3)
  - Contusion [Unknown]
  - Petechiae [Unknown]
  - Immune thrombocytopenic purpura [Not Recovered/Not Resolved]

NARRATIVE: CASE EVENT DATE: 20180706
